FAERS Safety Report 6085453-8 (Version None)
Quarter: 2009Q1

REPORT INFORMATION
  Report Type: 
  Country: None (occurrence: None)
  Receive Date: 20090220
  Receipt Date: 20090212
  Transmission Date: 20090719
  Serious: Yes (Hospitalization)
  Sender: FDA-Public Use
  Company Number: FR-AVENTIS-200910525FR

PATIENT
  Age: 67 Year
  Sex: Female

DRUGS (6)
  1. OFLOCET                            /00731801/ [Suspect]
     Indication: PROPHYLAXIS
     Route: 048
     Dates: start: 20081014, end: 20081014
  2. PROFENID [Suspect]
     Route: 048
     Dates: start: 20081014, end: 20081020
  3. BIPROFENID [Suspect]
     Route: 048
     Dates: start: 20081020, end: 20081020
  4. PYOSTACINE [Suspect]
     Indication: PROPHYLAXIS
     Route: 048
     Dates: start: 20081028, end: 20081029
  5. LOVENOX [Suspect]
     Indication: PROPHYLAXIS
  6. CETIRIZINE WINTHROP [Suspect]
     Route: 048
     Dates: start: 20081028, end: 20081029

REACTIONS (2)
  - RASH MACULO-PAPULAR [None]
  - TOXIC SKIN ERUPTION [None]
